FAERS Safety Report 7410389-7 (Version None)
Quarter: 2011Q2

REPORT INFORMATION
  Report Type: 
  Country: None (occurrence: None)
  Receive Date: 20110412
  Receipt Date: 20110405
  Transmission Date: 20111010
  Serious: Yes (Hospitalization)
  Sender: FDA-Public Use
  Company Number: US-US-EMD SERONO, INC.-234384K07USA

PATIENT
  Sex: Female
  Weight: 87 kg

DRUGS (5)
  1. TOPROL-XL [Concomitant]
     Route: 065
  2. LISINOPRIL [Concomitant]
     Route: 065
  3. ZETIA [Concomitant]
     Route: 065
  4. OTHER UNSPECIFIED MEDICATIONS [Concomitant]
  5. REBIF [Suspect]
     Indication: MULTIPLE SCLEROSIS
     Route: 058
     Dates: start: 20050927

REACTIONS (1)
  - STAPHYLOCOCCAL INFECTION [None]
